FAERS Safety Report 8935009 (Version 1)
Quarter: 2012Q4

REPORT INFORMATION
  Report Type: 
  Country: US (occurrence: US)
  Receive Date: 20121129
  Receipt Date: 20121129
  Transmission Date: 20130627
  Serious: Yes (Hospitalization)
  Sender: FDA-Public Use
  Company Number: US-ACTELION-A-US2012-74984

PATIENT
  Age: 53 Year
  Sex: Male

DRUGS (2)
  1. VELETRI [Suspect]
     Indication: PULMONARY ARTERIAL HYPERTENSION
     Dosage: 59.5 ng/kg, per min
     Route: 042
     Dates: start: 20111103
  2. SILDENAFIL [Concomitant]

REACTIONS (1)
  - Renal failure [Unknown]
